FAERS Safety Report 10304502 (Version 2)
Quarter: 2014Q3

REPORT INFORMATION
  Report Type: Spontaneous
  Country: GB (occurrence: GB)
  Receive Date: 20140715
  Receipt Date: 20140725
  Transmission Date: 20150326
  Serious: Yes (Other)
  Sender: FDA-Public Use
  Company Number: GB-ABBVIE-14P-167-1257811-00

PATIENT
  Age: 67 Year

DRUGS (1)
  1. HUMIRA [Suspect]
     Active Substance: ADALIMUMAB
     Indication: PRODUCT USED FOR UNKNOWN INDICATION
     Dosage: ALTERNATIVE WEEK
     Route: 058
     Dates: start: 201212

REACTIONS (5)
  - Dysarthria [Recovered/Resolved]
  - Renal pain [Recovered/Resolved]
  - Nephrolithiasis [Recovered/Resolved]
  - Cognitive disorder [Unknown]
  - Musculoskeletal pain [Recovered/Resolved]

NARRATIVE: CASE EVENT DATE: 201403
